FAERS Safety Report 9587523 (Version 2)
Quarter: 2013Q4

REPORT INFORMATION
  Report Type: Spontaneous
  Country: US (occurrence: US)
  Receive Date: 20131003
  Receipt Date: 20131003
  Transmission Date: 20140711
  Serious: Yes (Hospitalization)
  Sender: FDA-Public Use
  Company Number: US-GALDERMA-US13002648

PATIENT
  Age: 43 Year
  Sex: Female

DRUGS (6)
  1. CETAPHIL DAILY FACIAL MOISTURIZER SPF15 [Suspect]
     Indication: DRY SKIN PROPHYLAXIS
     Dosage: INTERMITENT USE
     Route: 061
     Dates: start: 20130813, end: 20130819
  2. SYNTHROID [Concomitant]
     Indication: HYPOTHYROIDISM
     Route: 048
  3. WITCH HAZEL [Concomitant]
     Indication: THERAPEUTIC SKIN CARE TOPICAL
     Route: 061
  4. VASELINE [Concomitant]
     Indication: SKIN WRINKLING
     Route: 061
  5. ANTIBIOTIC [Concomitant]
     Indication: SINUSITIS
     Route: 048
  6. COVER GIRL FRESH LOOK [Concomitant]
     Indication: THERAPEUTIC SKIN CARE TOPICAL
     Route: 061

REACTIONS (15)
  - Sinusitis [Not Recovered/Not Resolved]
  - Hypoaesthesia [Recovered/Resolved]
  - Bone pain [Recovered/Resolved]
  - Visual impairment [Recovered/Resolved]
  - Pain in jaw [Not Recovered/Not Resolved]
  - Nasal discomfort [Recovered/Resolved]
  - Toothache [Recovering/Resolving]
  - Asthenia [Recovered/Resolved]
  - Ear pain [Recovered/Resolved]
  - Vision blurred [Recovered/Resolved]
  - Tinnitus [Recovered/Resolved]
  - Feeling hot [Recovered/Resolved]
  - Burning sensation [Recovered/Resolved]
  - Nausea [Recovered/Resolved]
  - Discomfort [Recovered/Resolved]
